FAERS Safety Report 9200147 (Version 1)
Quarter: 2013Q1

REPORT INFORMATION
  Report Type: Spontaneous
  Country: BR (occurrence: BR)
  Receive Date: 20130329
  Receipt Date: 20130329
  Transmission Date: 20140127
  Serious: Yes (Hospitalization, Other)
  Sender: FDA-Public Use
  Company Number: BR-ABBOTT-13X-020-1067985-00

PATIENT
  Sex: Male
  Weight: 85 kg

DRUGS (12)
  1. DEPAKOTE ER [Suspect]
     Indication: MOVEMENT DISORDER
     Route: 048
     Dates: start: 2011
  2. DEPAKOTE ER [Suspect]
     Indication: MUSCLE SPASMS
     Route: 048
  3. TRILEPTAL [Suspect]
     Indication: PARTIAL SEIZURES
     Route: 048
     Dates: start: 201301, end: 201303
  4. TRILEPTAL [Suspect]
     Route: 048
     Dates: start: 201303
  5. KALETRA [Concomitant]
     Indication: HIV INFECTION
     Dosage: 200 MG / 50 MG
     Route: 048
     Dates: start: 2009
  6. LAMIVUDINE [Concomitant]
     Indication: PRODUCT USED FOR UNKNOWN INDICATION
     Route: 048
     Dates: start: 2009
  7. NORVIR [Concomitant]
     Indication: HIV INFECTION
     Route: 048
     Dates: start: 2009
  8. SALINE [Concomitant]
     Indication: PREOPERATIVE CARE
     Route: 013
     Dates: start: 20130307, end: 20130308
  9. SALINE [Concomitant]
     Indication: POSTOPERATIVE CARE
  10. REUQUINOL [Concomitant]
     Indication: PREOPERATIVE CARE
     Route: 060
     Dates: start: 20130307, end: 20130307
  11. CIPROFLOXACIN [Concomitant]
     Indication: POSTOPERATIVE CARE
     Route: 048
     Dates: start: 20130318
  12. MIOSAN [Concomitant]
     Indication: SLEEP DISORDER THERAPY
     Dosage: HALF A TABLET DAILY
     Route: 048
     Dates: start: 201207

REACTIONS (8)
  - Partial seizures [Recovering/Resolving]
  - Haemorrhoids [Unknown]
  - Muscle spasms [Not Recovered/Not Resolved]
  - Dizziness [Recovering/Resolving]
  - Asthenia [Not Recovered/Not Resolved]
  - Fatigue [Not Recovered/Not Resolved]
  - Insomnia [Recovered/Resolved]
  - Local swelling [Not Recovered/Not Resolved]
